FAERS Safety Report 18633192 (Version 1)
Quarter: 2020Q4

REPORT INFORMATION
  Report Type: Spontaneous
  Country: US (occurrence: US)
  Receive Date: 20201217
  Receipt Date: 20201217
  Transmission Date: 20210114
  Serious: No
  Sender: FDA-Public Use
  Company Number: None

PATIENT
  Age: 59 Year
  Sex: Male

DRUGS (1)
  1. SOFOSBUVIR AND VELPATASVIR [Suspect]
     Active Substance: SOFOSBUVIR\VELPATASVIR
     Indication: HEPATITIS C
     Dosage: ?          OTHER DOSE:400/100;?
     Route: 048
     Dates: start: 20201210, end: 20201214

REACTIONS (6)
  - Therapy cessation [None]
  - Fatigue [None]
  - Pain [None]
  - Depression [None]
  - Headache [None]
  - Insomnia [None]

NARRATIVE: CASE EVENT DATE: 20201214
